FAERS Safety Report 4974504-7 (Version None)
Quarter: 2006Q1

REPORT INFORMATION
  Report Type: 
  Country: None (occurrence: None)
  Receive Date: 20060216
  Receipt Date: 20060106
  Transmission Date: 20060701
  Serious: No
  Sender: FDA-Public Use
  Company Number: TPA2006A00041

PATIENT
  Age: 82 Year
  Sex: Male
  Weight: 122.4712 kg

DRUGS (13)
  1. ROZEREM [Suspect]
     Indication: INSOMNIA
     Dosage: 8 MG, QHS, PER ORAL
     Route: 048
     Dates: start: 20060103
  2. ACTOS [Suspect]
     Dosage: 15 MG, 1 IN 1 D, PER ORAL
     Route: 048
     Dates: start: 20050701
  3. ISOSORBIDE (ISOSORBIDE) [Concomitant]
  4. BUMETANIDE [Concomitant]
  5. K-DUR 10 [Concomitant]
  6. TRICOR [Concomitant]
  7. NIFEDIPINE [Concomitant]
  8. PRAVACHOL [Concomitant]
  9. ALLOPURINOL [Concomitant]
  10. LACTULOSE [Concomitant]
  11. ZAROXOLYN [Concomitant]
  12. ATROVENT [Concomitant]
  13. COSOPT EYE DROPS (COSOPT) [Concomitant]

REACTIONS (1)
  - INSOMNIA [None]
